FAERS Safety Report 5257193-6 (Version None)
Quarter: 2007Q1

REPORT INFORMATION
  Report Type: 
  Country: None (occurrence: None)
  Receive Date: 20070307
  Receipt Date: 20070305
  Transmission Date: 20070707
  Serious: Yes (Other)
  Sender: FDA-Public Use
  Company Number: 2007-002008

PATIENT
  Age: 34 Year
  Sex: Female
  Weight: 57.2 kg

DRUGS (8)
  1. FLOLAN [Suspect]
     Dosage: 88NGKM UNKNOWN
     Route: 042
     Dates: start: 20031009
  2. TYLENOL [Concomitant]
     Dosage: 650MG AS REQUIRED
     Route: 048
  3. COUMADIN [Concomitant]
     Dosage: 7.5MG PER DAY
     Route: 048
  4. ALDACTONE [Concomitant]
     Dosage: 12.5MG PER DAY
     Route: 048
  5. VIAGRA [Concomitant]
     Dosage: 25MG PER DAY
     Route: 048
  6. LASIX [Concomitant]
     Dosage: 20MG PER DAY
     Route: 048
  7. DIGITEK [Concomitant]
     Dosage: .125MG PER DAY
     Route: 048
  8. IMODIUM [Concomitant]
     Dosage: 2MG AS REQUIRED
     Route: 048

REACTIONS (2)
  - CATHETER RELATED COMPLICATION [None]
  - PHARMACEUTICAL PRODUCT COMPLAINT [None]
